FAERS Safety Report 8480742-1 (Version None)
Quarter: 2012Q2

REPORT INFORMATION
  Report Type: 
  Country: None (occurrence: None)
  Receive Date: 20120618
  Receipt Date: 20120608
  Transmission Date: 20120825
  Serious: Yes (Other)
  Sender: FDA-Public Use
  Company Number: DSA_57883_2012

PATIENT

DRUGS (6)
  1. DOXORUBICIN HCL [Suspect]
     Indication: OESOPHAGEAL CARCINOMA
     Dosage: 35 MG/M2, EVERY CYCLE
  2. CISPLATIN [Suspect]
     Indication: OESOPHAGEAL CARCINOMA
     Dosage: 70 MG/M2 EVERY CYCLE INTRAVENOUS (NOT OTHERWISE SPECIFIED0
     Route: 042
  3. I.V. SOLUTIONS [Concomitant]
  4. ANTIEMETICS AND ANTINAUSEANTS [Concomitant]
  5. ALL OTHER THERAPEUTIC PRODUCTS (ALL OTHER THERAPEUTICS PRODUCTS) [Concomitant]
  6. FLUOROURACIL [Suspect]
     Indication: OESOPHAGEAL CARCINOMA
     Dosage: 700 MG/M2 DAILY INTRAVENOUS (NOT OTHERWISE SPECIFIED)
     Route: 042

REACTIONS (1)
  - NAUSEA [None]
